FAERS Safety Report 13360265 (Version 1)
Quarter: 2017Q1

REPORT INFORMATION
  Report Type: Spontaneous
  Country: US (occurrence: US)
  Receive Date: 20170322
  Receipt Date: 20170322
  Transmission Date: 20170429
  Serious: No
  Sender: FDA-Public Use
  Company Number: US-ALLERGAN-1705607US

PATIENT
  Sex: Male

DRUGS (1)
  1. BYVALSON [Suspect]
     Active Substance: NEBIVOLOL HYDROCHLORIDE\VALSARTAN
     Indication: HYPERTENSION
     Dosage: UNK, BID
     Route: 065

REACTIONS (2)
  - Drug ineffective [Unknown]
  - Off label use [Unknown]
